FAERS Safety Report 9111962 (Version 1)
Quarter: 2013Q1

REPORT INFORMATION
  Report Type: Spontaneous
  Country: US (occurrence: US)
  Receive Date: 20130219
  Receipt Date: 20130219
  Transmission Date: 20140127
  Serious: Yes (Other)
  Sender: FDA-Public Use
  Company Number: US-BRISTOL-MYERS SQUIBB COMPANY-16355125

PATIENT
  Age: 52 Year
  Sex: Female

DRUGS (1)
  1. ORENCIA FOR INJ [Suspect]
     Dosage: ABATACEPT INF FROM NOV-2011?INJECTION FROM JAN-2012?LST INJECTION ON 12-JAN-2012
     Dates: start: 201111

REACTIONS (1)
  - Pneumonia [Recovering/Resolving]
